FAERS Safety Report 25037193 (Version 5)
Quarter: 2025Q1

REPORT INFORMATION
  Report Type: Spontaneous
  Country: ES (occurrence: ES)
  Receive Date: 20250304
  Receipt Date: 20250325
  Transmission Date: 20250408
  Serious: Yes (Life-Threatening, Hospitalization, Other)
  Sender: MYLAN
  Company Number: ES-SANDOZ-SDZ2025ES010770

PATIENT
  Age: 76 Year
  Sex: Male

DRUGS (5)
  1. ABIRATERONE [Interacting]
     Active Substance: ABIRATERONE
     Indication: Hormone-refractory prostate cancer
     Dosage: 100 MILLIGRAM, QD (100 MG, QD)
     Dates: start: 202110, end: 202311
  2. ABIRATERONE [Interacting]
     Active Substance: ABIRATERONE
     Indication: Prostate cancer metastatic
  3. ROSUVASTATIN [Interacting]
     Active Substance: ROSUVASTATIN
     Indication: Hypercholesterolaemia
     Dosage: 10 MILLIGRAM, QD (10 MG, QD)
     Dates: start: 2020, end: 202311
  4. PREDNISONE [Concomitant]
     Active Substance: PREDNISONE
     Indication: Prostate cancer metastatic
     Dosage: 10 MILLIGRAM, QD
     Dates: start: 202110
  5. PREDNISONE [Concomitant]
     Active Substance: PREDNISONE
     Indication: Hormone-refractory prostate cancer

REACTIONS (6)
  - Drug interaction [Unknown]
  - Rhabdomyolysis [Recovering/Resolving]
  - Myopathy toxic [Recovering/Resolving]
  - Acute kidney injury [Recovering/Resolving]
  - Hypokalaemia [Recovering/Resolving]
  - Renal impairment [Unknown]

NARRATIVE: CASE EVENT DATE: 20231101
